FAERS Safety Report 13658131 (Version 2)
Quarter: 2017Q3

REPORT INFORMATION
  Report Type: Report from Study
  Country: GB (occurrence: GB)
  Receive Date: 20170616
  Receipt Date: 20170731
  Transmission Date: 20171127
  Serious: Yes (Hospitalization, Other)
  Sender: FDA-Public Use
  Company Number: GB-ROCHE-1650967

PATIENT
  Sex: Female

DRUGS (1)
  1. ROACTEMRA [Suspect]
     Active Substance: TOCILIZUMAB
     Indication: RHEUMATOID ARTHRITIS
     Route: 058
     Dates: start: 20150324

REACTIONS (5)
  - Pneumonia [Unknown]
  - Cerebrovascular accident [Unknown]
  - Infection [Unknown]
  - Lower respiratory tract infection [Unknown]
  - Malaise [Unknown]
